FAERS Safety Report 7654929-1 (Version None)
Quarter: 2011Q3

REPORT INFORMATION
  Report Type: 
  Country: None (occurrence: None)
  Receive Date: 20110804
  Receipt Date: 20110721
  Transmission Date: 20111222
  Serious: Yes (Hospitalization)
  Sender: FDA-Public Use
  Company Number: US-BAYER-2010-007090

PATIENT
  Age: 26 Year
  Sex: Female
  Weight: 83.9 kg

DRUGS (12)
  1. PROZAC [Concomitant]
     Indication: DEPRESSION
     Dosage: 20 MG, QD
  2. DARVOCET [Concomitant]
  3. NAPROXEN [Concomitant]
     Dosage: 550 MG, PRN
     Dates: start: 20080101, end: 20090101
  4. WELLBUTRIN XL [Concomitant]
     Indication: DEPRESSION
     Dosage: 150 MG, QD
  5. KLONOPIN [Concomitant]
     Indication: ANXIETY
     Dosage: 1.5 MG, QD
  6. AMBIEN CR [Concomitant]
     Dosage: 12.5 MG, HS
     Route: 048
     Dates: start: 20090226
  7. YAZ [Suspect]
     Indication: CONTRACEPTION
     Dosage: UNK
     Dates: start: 20080908, end: 20100201
  8. YAZ [Suspect]
     Dosage: UNK
     Dates: start: 20080901, end: 20090401
  9. ZOLPIDEM [Concomitant]
     Indication: INSOMNIA
     Dosage: 10 MG, HS
     Dates: start: 20090108, end: 20090224
  10. PRILOSEC [Concomitant]
     Dosage: 20 MG, BID
     Dates: start: 20090101
  11. XANAX [Concomitant]
     Indication: ANXIETY
     Dosage: UNK
  12. YAZ [Suspect]
     Dosage: UNK
     Dates: start: 20091101, end: 20100201

REACTIONS (8)
  - PANCREATITIS [None]
  - DYSPEPSIA [None]
  - CHOLECYSTITIS CHRONIC [None]
  - GALLBLADDER DISORDER [None]
  - CHOLELITHIASIS [None]
  - SCAR [None]
  - PAIN [None]
  - JAUNDICE [None]
